FAERS Safety Report 5945915-8 (Version None)
Quarter: 2008Q4

REPORT INFORMATION
  Report Type: 
  Country: None (occurrence: None)
  Receive Date: 20081105
  Receipt Date: 20081031
  Transmission Date: 20090506
  Serious: Yes (Other)
  Sender: FDA-Public Use
  Company Number: 1000001226

PATIENT
  Age: 52 Year
  Sex: Female

DRUGS (4)
  1. CITALOPRAM HYDROBROMIDE [Suspect]
     Indication: DEPRESSION
  2. DHEA [Suspect]
  3. PROGESTERONE [Suspect]
  4. TESTOSTERONE [Suspect]

REACTIONS (1)
  - FEMALE SEXUAL AROUSAL DISORDER [None]
